FAERS Safety Report 19477749 (Version 1)
Quarter: 2021Q2

REPORT INFORMATION
  Report Type: Spontaneous
  Country: US (occurrence: US)
  Receive Date: 20210630
  Receipt Date: 20210630
  Transmission Date: 20210717
  Serious: No
  Sender: FDA-Public Use
  Company Number: US-KRAMERLABS-2020-US-022712

PATIENT
  Age: 66 Year
  Sex: Male
  Weight: 68.04 kg

DRUGS (2)
  1. NIZORAL A?D [Suspect]
     Active Substance: KETOCONAZOLE
     Indication: DANDRUFF
     Dosage: SHAMPOOED ONCE OR TWICE A WEEK
     Route: 061
     Dates: start: 202007, end: 20201029
  2. CITRACAL [Concomitant]
     Active Substance: CALCIUM CITRATE

REACTIONS (2)
  - Skin ulcer [Recovered/Resolved]
  - Blister [Recovered/Resolved]

NARRATIVE: CASE EVENT DATE: 202007
